FAERS Safety Report 23517771 (Version 11)
Quarter: 2025Q1

REPORT INFORMATION
  Report Type: Report from Study
  Country: MX (occurrence: MX)
  Receive Date: 20240213
  Receipt Date: 20250320
  Transmission Date: 20250409
  Serious: Yes (Hospitalization, Other)
  Sender: TAKEDA
  Company Number: MX-TAKEDA-2022TUS070091

PATIENT
  Age: 39 Year
  Sex: Female

DRUGS (7)
  1. ICATIBANT [Suspect]
     Active Substance: ICATIBANT ACETATE
     Indication: Hereditary angioedema
     Dosage: 1 DOSAGE FORM, Q2WEEKS
     Dates: start: 20220907
  2. ICATIBANT [Suspect]
     Active Substance: ICATIBANT ACETATE
  3. ICATIBANT [Suspect]
     Active Substance: ICATIBANT ACETATE
  4. ICATIBANT [Suspect]
     Active Substance: ICATIBANT ACETATE
  5. ICATIBANT [Suspect]
     Active Substance: ICATIBANT ACETATE
  6. ICATIBANT [Suspect]
     Active Substance: ICATIBANT ACETATE
  7. ICATIBANT [Suspect]
     Active Substance: ICATIBANT ACETATE

REACTIONS (18)
  - High risk pregnancy [Recovered/Resolved]
  - Loss of consciousness [Recovering/Resolving]
  - Laryngeal oedema [Recovered/Resolved]
  - Stress [Unknown]
  - Maternal exposure during breast feeding [Unknown]
  - Fear [Unknown]
  - Malaise [Recovering/Resolving]
  - Anxiety [Unknown]
  - Polyuria [Not Recovered/Not Resolved]
  - Injury [Recovered/Resolved]
  - Product availability issue [Unknown]
  - Pregnancy [Recovered/Resolved]
  - Influenza [Recovered/Resolved]
  - Asthenia [Recovering/Resolving]
  - Hypoaesthesia [Recovering/Resolving]
  - Nasopharyngitis [Recovering/Resolving]
  - Dizziness [Recovering/Resolving]
  - Headache [Recovered/Resolved]

NARRATIVE: CASE EVENT DATE: 20221012
